FAERS Safety Report 10377730 (Version 1)
Quarter: 2014Q3

REPORT INFORMATION
  Report Type: Spontaneous
  Country: FR (occurrence: FR)
  Receive Date: 20140812
  Receipt Date: 20140812
  Transmission Date: 20150326
  Serious: Yes (Life-Threatening, Other)
  Sender: FDA-Public Use
  Company Number: FR-JNJFOC-20140719883

PATIENT
  Age: 47 Year
  Sex: Male

DRUGS (4)
  1. THERALITE [Suspect]
     Active Substance: LITHIUM CARBONATE
     Indication: BIPOLAR DISORDER
     Dosage: 3.5 DOSE PER DAY
     Route: 048
     Dates: start: 20131224, end: 20131231
  2. TERCIAN [Suspect]
     Active Substance: CYAMEMAZINE
     Indication: PSYCHOTIC DISORDER
     Route: 048
     Dates: start: 20131224, end: 20131227
  3. LOXAPAC [Suspect]
     Active Substance: LOXAPINE SUCCINATE
     Indication: PSYCHOTIC DISORDER
     Route: 048
     Dates: start: 20131230, end: 20140101
  4. RISPERDAL [Suspect]
     Active Substance: RISPERIDONE
     Indication: PSYCHOTIC DISORDER
     Route: 048
     Dates: start: 20131224, end: 20131227

REACTIONS (6)
  - Leukocytosis [Unknown]
  - Extrapyramidal disorder [Unknown]
  - Atrial fibrillation [Unknown]
  - Electrocardiogram QT prolonged [Recovered/Resolved]
  - Serotonin syndrome [Recovered/Resolved]
  - Neurological symptom [Unknown]

NARRATIVE: CASE EVENT DATE: 20131227
